FAERS Safety Report 9824141 (Version 3)
Quarter: 2014Q2

REPORT INFORMATION
  Report Type: Spontaneous
  Country: US (occurrence: US)
  Receive Date: 20140116
  Receipt Date: 20140512
  Transmission Date: 20141212
  Serious: Yes (Hospitalization)
  Sender: FDA-Public Use
  Company Number: US-GLAXOSMITHKLINE-A1034482A

PATIENT
  Age: 54 Year
  Sex: Male
  Weight: 143.6 kg

DRUGS (1)
  1. AVANDIA [Suspect]
     Indication: DIABETES MELLITUS
     Dosage: 8MG PER DAY
     Route: 048
     Dates: start: 200304, end: 200312

REACTIONS (2)
  - Cardiac failure congestive [Not Recovered/Not Resolved]
  - Angina pectoris [Unknown]
